FAERS Safety Report 21057368 (Version 1)
Quarter: 2022Q3

REPORT INFORMATION
  Report Type: Spontaneous
  Country: US (occurrence: None)
  Receive Date: 20220707
  Receipt Date: 20220707
  Transmission Date: 20221027
  Serious: Yes (Life-Threatening, Hospitalization)
  Sender: FDA-Public Use
  Company Number: None

PATIENT
  Age: 65 Year
  Sex: Male

DRUGS (1)
  1. LUMASON [Suspect]
     Active Substance: SULFUR HEXAFLUORIDE
     Indication: Echocardiogram
     Dosage: 2 ML TIMES ONE INTRAVENOUS BOLOUS?
     Route: 040
     Dates: start: 20220706, end: 20220706

REACTIONS (5)
  - Syncope [None]
  - Dyspnoea [None]
  - Hyperhidrosis [None]
  - Pallor [None]
  - Anaphylactic reaction [None]

NARRATIVE: CASE EVENT DATE: 20220706
